FAERS Safety Report 9027961 (Version 2)
Quarter: 2013Q1

REPORT INFORMATION
  Report Type: Spontaneous
  Country: FR (occurrence: FR)
  Receive Date: 20130123
  Receipt Date: 20130212
  Transmission Date: 20140127
  Serious: Yes (Other)
  Sender: FDA-Public Use
  Company Number: FR-ROCHE-1174446

PATIENT
  Age: 68 Year
  Sex: Male

DRUGS (4)
  1. ALTEPLASE [Suspect]
     Indication: POSTOPERATIVE THROMBOSIS
     Dosage: OVER 3 MIN
     Route: 040
     Dates: start: 19891024, end: 19891024
  2. ALTEPLASE [Suspect]
     Dosage: OVER 1 HR
     Route: 042
     Dates: start: 19891024, end: 19891024
  3. ALTEPLASE [Suspect]
     Dosage: OVER 2 HR
     Route: 042
     Dates: start: 19891024, end: 19891024
  4. HEPARIN [Concomitant]

REACTIONS (2)
  - Cardiac valve prosthesis user [Unknown]
  - Cardiac tamponade [Unknown]
